FAERS Safety Report 8240609-0 (Version None)
Quarter: 2012Q1

REPORT INFORMATION
  Report Type: 
  Country: None (occurrence: None)
  Receive Date: 20120309
  Receipt Date: 20100616
  Transmission Date: 20120608
  Serious: Yes (Other)
  Sender: FDA-Public Use
  Company Number: PHHY2010US16547

PATIENT
  Age: 49 Year
  Sex: Female

DRUGS (16)
  1. EXTAVIA [Suspect]
     Indication: MULTIPLE SCLEROSIS
     Dosage: SUBCUTANEOUS, 0.0625 MG QOD, SUBCUTANEOUS, 1/4TH OF THE DOSE, SUBCUTANEOUS
     Route: 058
     Dates: start: 20100309
  2. ALBUTEROL [Concomitant]
  3. BACLOFEN [Concomitant]
  4. INSULIN (INSULIN) [Concomitant]
  5. VICODIN [Concomitant]
  6. TEGRETOL [Concomitant]
  7. LISINOPRIL [Concomitant]
  8. NEURONTIN [Concomitant]
  9. SIMVASTATIN [Concomitant]
  10. PREVACID [Concomitant]
  11. LASIX (FUROSEMISE) [Concomitant]
  12. SOMA [Concomitant]
  13. CHENTEX [Concomitant]
  14. DIGOXIN [Concomitant]
  15. ALBUTEROL (SALBUTAMOL) INHALER [Concomitant]
  16. XANAX [Concomitant]

REACTIONS (5)
  - BURNING SENSATION [None]
  - PAIN IN EXTREMITY [None]
  - ASTHENIA [None]
  - FEELING HOT [None]
  - DEPRESSED MOOD [None]
